FAERS Safety Report 25451453 (Version 1)
Quarter: 2025Q2

REPORT INFORMATION
  Report Type: Spontaneous
  Country: US (occurrence: US)
  Receive Date: 20250618
  Receipt Date: 20250618
  Transmission Date: 20250717
  Serious: No
  Sender: INSUD PHARMA
  Company Number: US-INSUD PHARMA-2506US04526

PATIENT

DRUGS (1)
  1. TYBLUME [Suspect]
     Active Substance: ETHINYL ESTRADIOL\LEVONORGESTREL
     Indication: Oral contraception
     Dosage: 1 DOSAGE FORM, QD, ^CONTINUOUSLY^
     Route: 048

REACTIONS (1)
  - Heavy menstrual bleeding [Unknown]
